FAERS Safety Report 7054969-X (Version None)
Quarter: 2010Q4

REPORT INFORMATION
  Report Type: 
  Country: None (occurrence: None)
  Receive Date: 20101021
  Receipt Date: 20101013
  Transmission Date: 20110411
  Serious: Yes (Death, Hospitalization)
  Sender: FDA-Public Use
  Company Number: IT-ELI_LILLY_AND_COMPANY-IT201010003022

PATIENT
  Sex: Female

DRUGS (3)
  1. GEMZAR [Suspect]
     Indication: CHEMOTHERAPY
     Dosage: 1051 MG, PER CYCLE
     Route: 042
     Dates: start: 20100901
  2. CAELYX [Concomitant]
     Dosage: 32.62 MG, UNKNOWN
     Route: 042
     Dates: start: 20100901
  3. EPREX [Concomitant]
     Indication: ANAEMIA
     Dosage: 1 REPORTED EX-OFFCIO, AS NEEDED
     Route: 058
     Dates: start: 20100901

REACTIONS (6)
  - CONFUSIONAL STATE [None]
  - DECREASED APPETITE [None]
  - HAEMORRHAGE [None]
  - PARANEOPLASTIC SYNDROME [None]
  - REVERSIBLE POSTERIOR LEUKOENCEPHALOPATHY SYNDROME [None]
  - VOMITING [None]
